FAERS Safety Report 9156285 (Version 1)
Quarter: 2013Q1

REPORT INFORMATION
  Report Type: Spontaneous
  Country: US (occurrence: US)
  Receive Date: 20130109
  Receipt Date: 20130109
  Transmission Date: 20140127
  Serious: Yes (Other)
  Sender: FDA-Public Use
  Company Number: US-RB-048103-13

PATIENT
  Age: 31 Year
  Sex: Female

DRUGS (3)
  1. DELSYM [Suspect]
     Indication: PRODUCT USED FOR UNKNOWN INDICATION
     Dates: start: 20121226
  2. CLONAZEPAM [Concomitant]
     Indication: EPILEPSY
  3. PROZAC [Concomitant]
     Indication: EPILEPSY

REACTIONS (4)
  - Epileptic aura [Recovered/Resolved]
  - Tremor [Recovered/Resolved]
  - Adverse drug reaction [Recovered/Resolved]
  - Contraindication to medical treatment [Recovered/Resolved]
